FAERS Safety Report 23477828 (Version 1)
Quarter: 2024Q1

REPORT INFORMATION
  Report Type: Report from Study
  Country: CA (occurrence: CA)
  Receive Date: 20240204
  Receipt Date: 20240204
  Transmission Date: 20240410
  Serious: No
  Sender: FDA-Public Use
  Company Number: CA-IPSEN Group, Research and Development-2023-15447

PATIENT
  Sex: Male

DRUGS (5)
  1. CABOMETYX [Suspect]
     Active Substance: CABOZANTINIB S-MALATE
     Indication: Renal cell carcinoma
     Dosage: 40 MG, QD
     Route: 048
     Dates: start: 20230313
  2. CABOMETYX [Suspect]
     Active Substance: CABOZANTINIB S-MALATE
     Dosage: 60 MG, QD
     Route: 048
     Dates: start: 20230313
  3. SYNTHROID [Concomitant]
     Active Substance: LEVOTHYROXINE SODIUM
  4. ZOMETA [Concomitant]
     Active Substance: ZOLEDRONIC ACID
     Dosage: 4 MG
     Route: 042
  5. UREA [Concomitant]
     Active Substance: UREA
     Indication: Hyperkeratosis
     Dosage: 20 % BID

REACTIONS (7)
  - Tongue discomfort [Not Recovered/Not Resolved]
  - Fatigue [Unknown]
  - Nausea [Recovering/Resolving]
  - Dizziness [Unknown]
  - Diarrhoea [Recovering/Resolving]
  - Hot flush [Unknown]
  - Anxiety [Unknown]
